FAERS Safety Report 8377508-X (Version None)
Quarter: 2012Q2

REPORT INFORMATION
  Report Type: 
  Country: None (occurrence: None)
  Receive Date: 20120522
  Receipt Date: 20110923
  Transmission Date: 20120825
  Serious: No
  Sender: FDA-Public Use
  Company Number: US-ASTRAZENECA-2011SE57781

PATIENT
  Age: 65 Year
  Sex: Female

DRUGS (2)
  1. PRILOSEC [Suspect]
     Route: 048
  2. PRILOSEC OTC [Suspect]
     Route: 048

REACTIONS (6)
  - GASTROOESOPHAGEAL REFLUX DISEASE [None]
  - DIVERTICULITIS [None]
  - CHOLELITHIASIS [None]
  - ARTHRITIS [None]
  - BACTERIAL INFECTION [None]
  - INTERVERTEBRAL DISC DEGENERATION [None]
